FAERS Safety Report 5362905-7 (Version None)
Quarter: 2007Q2

REPORT INFORMATION
  Report Type: 
  Country: None (occurrence: None)
  Receive Date: 20070615
  Receipt Date: 20070607
  Transmission Date: 20071010
  Serious: Yes (Other)
  Sender: FDA-Public Use
  Company Number: SPV1-2007-03198

PATIENT
  Age: 89 Year
  Sex: Male
  Weight: 83 kg

DRUGS (10)
  1. FOSRENOL [Suspect]
     Indication: HYPERPHOSPHATAEMIA
     Dosage: 1000 MG, 1X/DAY: QD, ORAL
     Route: 048
     Dates: start: 20070524, end: 20070524
  2. FOLIC ACID [Concomitant]
  3. HYDROCODONE (HYDROCODONE) [Concomitant]
  4. LASIX [Concomitant]
  5. LISINOPRIL [Concomitant]
  6. DIALYVITE 3000 (ASCORBIC ACID, FOLIC ACID, VITAMIN-B-KOMPLEX STANDARD) [Concomitant]
  7. RENAGEL /01459901/ (SEVELAMER) [Concomitant]
  8. ROBAXIN /00047901/ (METHOCARBAMOL) [Concomitant]
  9. WARFARIN SODIUM [Concomitant]
  10. ZAROXOLYN [Concomitant]

REACTIONS (2)
  - EYE OEDEMA [None]
  - SWELLING FACE [None]
